FAERS Safety Report 21023821 (Version 1)
Quarter: 2022Q3

REPORT INFORMATION
  Report Type: Spontaneous
  Country: IL (occurrence: IL)
  Receive Date: 20220629
  Receipt Date: 20220629
  Transmission Date: 20221027
  Serious: Yes (Other)
  Sender: FDA-Public Use
  Company Number: IL-NOVARTISPH-NVSC2022IL145104

PATIENT

DRUGS (3)
  1. CYTARABINE [Suspect]
     Active Substance: CYTARABINE
     Indication: Acute myeloid leukaemia refractory
     Dosage: UNK
     Route: 065
  2. FLUDARABINE PHOSPHATE [Suspect]
     Active Substance: FLUDARABINE PHOSPHATE
     Indication: Acute myeloid leukaemia refractory
     Dosage: UNK
     Route: 065
  3. VENETOCLAX [Suspect]
     Active Substance: VENETOCLAX
     Indication: Acute myeloid leukaemia refractory
     Dosage: UNK
     Route: 065

REACTIONS (2)
  - Venoocclusive liver disease [Recovered/Resolved]
  - Product use in unapproved indication [Unknown]
